FAERS Safety Report 6386887-4 (Version None)
Quarter: 2009Q4

REPORT INFORMATION
  Report Type: 
  Country: None (occurrence: None)
  Receive Date: 20091001
  Receipt Date: 20091001
  Transmission Date: 20100525
  Serious: No
  Sender: FDA-Public Use
  Company Number: None

PATIENT
  Age: 39 Year
  Sex: Female

DRUGS (2)
  1. BUPROPION HCL [Suspect]
     Indication: ANXIETY
     Dosage: 150  1 DAILY ORAL
     Route: 048
     Dates: start: 20090826, end: 20090922
  2. BUPROPION HCL [Suspect]
     Indication: DEPRESSION
     Dosage: 150  1 DAILY ORAL
     Route: 048
     Dates: start: 20090826, end: 20090922

REACTIONS (4)
  - CRYING [None]
  - DECREASED INTEREST [None]
  - TREMOR [None]
  - WEIGHT INCREASED [None]
